FAERS Safety Report 6032465-6 (Version None)
Quarter: 2009Q1

REPORT INFORMATION
  Report Type: 
  Country: None (occurrence: None)
  Receive Date: 20090107
  Receipt Date: 20081223
  Transmission Date: 20090719
  Serious: Yes (Other)
  Sender: FDA-Public Use
  Company Number: KV200801403

PATIENT
  Age: 59 Year
  Sex: Female
  Weight: 92.5 kg

DRUGS (3)
  1. ISOSORBIDE MONONITRATE [Suspect]
     Indication: CARDIAC DISORDER
     Dosage: 60 MG, QD, ORAL
     Route: 048
     Dates: start: 20080501, end: 20081101
  2. PLAVIX (CLOPIODGREL) [Concomitant]
  3. NUMEROUS UNSPECIFIED MEDICATIONS [Concomitant]

REACTIONS (3)
  - HOMICIDAL IDEATION [None]
  - PERSONALITY CHANGE [None]
  - PRODUCT QUALITY ISSUE [None]
